FAERS Safety Report 17434238 (Version 4)
Quarter: 2020Q3

REPORT INFORMATION
  Report Type: Spontaneous
  Country: US (occurrence: US)
  Receive Date: 20200219
  Receipt Date: 20200713
  Transmission Date: 20201102
  Serious: No
  Sender: FDA-Public Use
  Company Number: US-PFIZER INC-2020072665

PATIENT
  Age: 53 Year
  Sex: Female
  Weight: 120.18 kg

DRUGS (2)
  1. LYRICA [Suspect]
     Active Substance: PREGABALIN
     Indication: NEURALGIA
     Dosage: 20 MG, 3X/DAY
     Dates: start: 2009
  2. LYRICA [Suspect]
     Active Substance: PREGABALIN
     Dosage: 75 MG, 3X/DAY
     Dates: start: 2011

REACTIONS (4)
  - Hyperhidrosis [Unknown]
  - Cold sweat [Unknown]
  - Withdrawal syndrome [Recovered/Resolved]
  - Anxiety [Unknown]

NARRATIVE: CASE EVENT DATE: 2011
